FAERS Safety Report 5166044-X (Version None)
Quarter: 2006Q4

REPORT INFORMATION
  Report Type: 
  Country: None (occurrence: None)
  Receive Date: 20061128
  Receipt Date: 20061117
  Transmission Date: 20070319
  Serious: Yes (Death)
  Sender: FDA-Public Use
  Company Number: 2006BH014644

PATIENT
  Age: 79 Year
  Sex: Male

DRUGS (1)
  1. PROMETHAZINE [Suspect]
     Indication: NAUSEA
     Dosage: 12.5 MG;ONCE;IVBOL
     Route: 040
     Dates: start: 20061025, end: 20061025

REACTIONS (10)
  - ACUTE MYOCARDIAL INFARCTION [None]
  - ANOXIC ENCEPHALOPATHY [None]
  - APNOEA [None]
  - BRAIN DEATH [None]
  - BRAIN OEDEMA [None]
  - BRAIN STEM SYNDROME [None]
  - CARDIO-RESPIRATORY ARREST [None]
  - CEREBRAL ISCHAEMIA [None]
  - PULMONARY OEDEMA [None]
  - PULSE ABSENT [None]
